FAERS Safety Report 9112790 (Version 2)
Quarter: 2013Q1

REPORT INFORMATION
  Report Type: Report from Study
  Country: US (occurrence: US)
  Receive Date: 20130211
  Receipt Date: 20130312
  Transmission Date: 20140127
  Serious: Yes (Death, Hospitalization, Other)
  Sender: FDA-Public Use
  Company Number: US-ASTELLAS-2013US001492

PATIENT
  Age: 54 None
  Sex: Female
  Weight: 49 kg

DRUGS (24)
  1. ERLOTINIB TABLET [Suspect]
     Indication: NON-SMALL CELL LUNG CANCER
     Dosage: 150 MG, UID/QD
     Route: 048
     Dates: start: 20121222, end: 20130117
  2. DUONEB [Concomitant]
     Indication: DYSPNOEA
     Dosage: 1 DF, Q6 HOURS
     Route: 055
  3. PACERONE [Concomitant]
     Indication: ATRIAL FIBRILLATION
     Dosage: 100 MG, UID/QD
     Route: 048
  4. AVELOX [Concomitant]
     Indication: PRODUCT USED FOR UNKNOWN INDICATION
     Dosage: 400 MG, UID/QD
     Route: 048
  5. TESSALON [Concomitant]
     Indication: COUGH
     Dosage: 100 MG, PRN
     Route: 048
  6. WELLBUTRIN XL [Concomitant]
     Indication: AFFECTIVE DISORDER
     Dosage: 300 MG, UID/QD
     Route: 048
  7. COREG [Concomitant]
     Indication: CARDIAC DISORDER
     Dosage: 1.56 MG, UID/QD
     Route: 048
  8. DEXILANT [Concomitant]
     Indication: GASTROINTESTINAL DISORDER
     Dosage: 60 MG, UID/QD
     Route: 048
  9. LASIX                              /00032601/ [Concomitant]
     Indication: FLUID RETENTION
     Dosage: 20 MG, UID/QD, PRN
     Route: 048
  10. HALDOL                             /00027401/ [Concomitant]
     Indication: ANXIETY
     Dosage: 1 MG, PRN Q2 H
     Route: 048
  11. HALDOL                             /00027401/ [Concomitant]
     Indication: NAUSEA
  12. HYCODAN                            /00060002/ [Concomitant]
     Indication: COUGH
     Dosage: 5 ML, PRN Q4H
     Route: 048
  13. ATARAX                             /00058401/ [Concomitant]
     Indication: PRURITUS
     Dosage: 25 MG, PRN Q6H
     Route: 048
  14. SYNTHROID [Concomitant]
     Indication: SUPPLEMENTATION THERAPY
     Dosage: 75 UG, UID/QD
     Route: 048
  15. METAXALONE [Concomitant]
     Indication: MUSCLE RELAXANT THERAPY
     Dosage: 800 MG, QHS
     Route: 048
  16. OXYCODONE [Concomitant]
     Indication: PAIN
     Dosage: 10 MG, PRN Q2H
     Route: 048
  17. PREDNISONE [Concomitant]
     Indication: RESPIRATORY DISORDER
     Dosage: 30 MG, UID/QD
     Route: 048
  18. COMPAZINE                          /00013304/ [Concomitant]
     Indication: NAUSEA
     Dosage: 10 MG, PRN Q6H
     Route: 048
  19. COMPAZINE                          /00013304/ [Concomitant]
     Indication: VOMITING
  20. SENNA                              /00142201/ [Concomitant]
     Indication: LAXATIVE SUPPORTIVE CARE
     Dosage: 8.6 MG, PRN Q12H
     Route: 048
  21. ZOCOR [Concomitant]
     Indication: HYPERLIPIDAEMIA
     Dosage: 10 MG, UID/QD
     Route: 048
  22. SYMBICORT [Concomitant]
     Indication: RESPIRATORY DISORDER
     Dosage: 160/4.5 UG BID
     Route: 055
  23. OXYTOCIN [Concomitant]
     Indication: ORAL PAIN
     Dosage: 10 ML, PRN Q4H
     Route: 048
  24. OXYTOCIN [Concomitant]
     Indication: OROPHARYNGEAL PAIN

REACTIONS (11)
  - Hypercalcaemia [Unknown]
  - Confusional state [Unknown]
  - Gastrointestinal infection [Unknown]
  - Lethargy [Unknown]
  - Diarrhoea [Unknown]
  - Pneumothorax [Unknown]
  - Cardiac failure congestive [Unknown]
  - Rib fracture [Unknown]
  - Lung cancer metastatic [Fatal]
  - Pneumonia [Unknown]
  - Interstitial lung disease [Unknown]
